FAERS Safety Report 16357184 (Version 1)
Quarter: 2019Q2

REPORT INFORMATION
  Report Type: Spontaneous
  Country: AT (occurrence: AT)
  Receive Date: 20190527
  Receipt Date: 20190527
  Transmission Date: 20190711
  Serious: Yes (Hospitalization, Other)
  Sender: FDA-Public Use
  Company Number: AT-BRISTOL-MYERS SQUIBB COMPANY-BMS-2019-048175

PATIENT
  Age: 84 Year
  Sex: Male

DRUGS (1)
  1. NIVOLUMAB [Suspect]
     Active Substance: NIVOLUMAB
     Indication: NEOPLASM MALIGNANT
     Dosage: UNK
     Route: 065
     Dates: start: 20181119

REACTIONS (9)
  - Adenocarcinoma of colon [Unknown]
  - Basal cell carcinoma [Unknown]
  - Enteritis [Unknown]
  - General physical health deterioration [Recovered/Resolved]
  - Skin fissures [Unknown]
  - Eczema [Unknown]
  - Product use in unapproved indication [Unknown]
  - Chills [Recovered/Resolved]
  - Diarrhoea [Recovered/Resolved]
